FAERS Safety Report 20818881 (Version 1)
Quarter: 2022Q2

REPORT INFORMATION
  Report Type: Spontaneous
  Country: FR (occurrence: FR)
  Receive Date: 20220512
  Receipt Date: 20220512
  Transmission Date: 20220721
  Serious: Yes (Other)
  Sender: FDA-Public Use
  Company Number: None

PATIENT
  Age: 33 Year
  Sex: Male

DRUGS (9)
  1. SILDENAFIL [Suspect]
     Active Substance: SILDENAFIL
     Route: 065
  2. TRAMADOL [Suspect]
     Active Substance: TRAMADOL
     Dosage: 500 MG/EPISODE , TRAMADOL BASE
     Route: 065
  3. AMYL NITRITE [Suspect]
     Active Substance: AMYL NITRITE
     Route: 065
  4. BUTYROLACTONE [Suspect]
     Active Substance: BUTYROLACTONE
     Route: 065
  5. 3-CHLOROMETHCATHINONE [Suspect]
     Active Substance: 3-CHLOROMETHCATHINONE
     Dosage: 1.5 G / SESSION AND 0.3-0.4 / TAKEN IN SEVERAL WEEKS, DURATION : 4 MONTHS
     Route: 042
  6. 3-CHLOROMETHCATHINONE [Suspect]
     Active Substance: 3-CHLOROMETHCATHINONE
     Dosage: 1.5 G / SESSION AND 0.3-0.4 / TAKEN IN SEVERAL WEEKS, DURATION : 4 MONTHS
     Route: 054
  7. 3-CHLOROMETHCATHINONE [Suspect]
     Active Substance: 3-CHLOROMETHCATHINONE
     Dosage: 1.5 G / SESSION AND 0.3-0.4 / TAKEN IN SEVERAL WEEKS, DURATION : 4 MONTHS
     Route: 045
  8. 3-CHLOROMETHCATHINONE [Suspect]
     Active Substance: 3-CHLOROMETHCATHINONE
     Dosage: 1.5 G / SESSION AND 0.3-0.4 / TAKEN IN SEVERAL WEEKS, DURATION : 4 MONTHS
     Route: 048
  9. UNSPECIFIED INGREDIENT [Suspect]
     Active Substance: UNSPECIFIED INGREDIENT
     Route: 065

REACTIONS (1)
  - Substance use disorder [Unknown]
